FAERS Safety Report 6520074-1 (Version None)
Quarter: 2009Q4

REPORT INFORMATION
  Report Type: 
  Country: None (occurrence: None)
  Receive Date: 20091229
  Receipt Date: 20091221
  Transmission Date: 20100525
  Serious: Yes (Hospitalization)
  Sender: FDA-Public Use
  Company Number: PHHO2009DE15719

PATIENT
  Sex: Male

DRUGS (1)
  1. CERTICAN [Suspect]
     Indication: HEART TRANSPLANT
     Dosage: UNK
     Route: 048
     Dates: start: 20091001

REACTIONS (3)
  - DRUG INEFFECTIVE [None]
  - HEART TRANSPLANT REJECTION [None]
  - LEFT VENTRICULAR DYSFUNCTION [None]
